FAERS Safety Report 8262187-2 (Version None)
Quarter: 2012Q2

REPORT INFORMATION
  Report Type: 
  Country: None (occurrence: None)
  Receive Date: 20120405
  Receipt Date: 20120328
  Transmission Date: 20120825
  Serious: Yes (Other)
  Sender: FDA-Public Use
  Company Number: US-JNJFOC-20120314969

PATIENT
  Sex: Male

DRUGS (4)
  1. ZYTIGA [Suspect]
     Route: 048
     Dates: start: 20110701, end: 20120301
  2. ZYTIGA [Suspect]
     Indication: PROSTATE CANCER
     Route: 048
     Dates: start: 20120327
  3. TRAMADOL HCL [Concomitant]
     Indication: ANALGESIC THERAPY
     Route: 065
  4. PREDNISONE TAB [Concomitant]
     Indication: PROSTATE CANCER
     Route: 048
     Dates: start: 20110101

REACTIONS (4)
  - DIPLOPIA [None]
  - METASTASES TO CENTRAL NERVOUS SYSTEM [None]
  - PROSTATIC SPECIFIC ANTIGEN INCREASED [None]
  - PAIN [None]
